FAERS Safety Report 4981928-0 (Version None)
Quarter: 2006Q2

REPORT INFORMATION
  Report Type: 
  Country: None (occurrence: None)
  Receive Date: 20060425
  Receipt Date: 20050615
  Transmission Date: 20061013
  Serious: Yes (Hospitalization, Disabling)
  Sender: FDA-Public Use
  Company Number: US-MERCK-0506USA02448

PATIENT
  Age: 79 Year
  Sex: Female
  Weight: 64 kg

DRUGS (1)
  1. VIOXX [Suspect]
     Indication: ARTHRITIS
     Route: 048
     Dates: start: 20010801, end: 20050401

REACTIONS (7)
  - ABDOMINAL PAIN [None]
  - CARDIAC FAILURE CONGESTIVE [None]
  - CORONARY ARTERY DISEASE [None]
  - HYPERTENSION [None]
  - INJURY [None]
  - INTERMITTENT CLAUDICATION [None]
  - MYOCARDIAL INFARCTION [None]
